FAERS Safety Report 5309636-7 (Version None)
Quarter: 2007Q2

REPORT INFORMATION
  Report Type: 
  Country: None (occurrence: None)
  Receive Date: 20070427
  Receipt Date: 20060620
  Transmission Date: 20071010
  Serious: No
  Sender: FDA-Public Use
  Company Number: US-GLAXOSMITHKLINE-A0609701A

PATIENT
  Sex: Male

DRUGS (8)
  1. DEXEDRINE [Suspect]
     Indication: ATTENTION DEFICIT/HYPERACTIVITY DISORDER
     Dosage: 5MG AS REQUIRED
     Route: 048
  2. ZETIA [Concomitant]
  3. PRILOSEC [Concomitant]
  4. MIRALAX [Concomitant]
  5. COLACE [Concomitant]
  6. MOBIC [Concomitant]
  7. AVAPRO [Concomitant]
  8. ZOCOR [Concomitant]

REACTIONS (1)
  - INSOMNIA [None]
